FAERS Safety Report 6855864-9 (Version None)
Quarter: 2010Q2

REPORT INFORMATION
  Report Type: 
  Country: None (occurrence: None)
  Receive Date: 20100629
  Receipt Date: 20100318
  Transmission Date: 20101027
  Serious: No
  Sender: FDA-Public Use
  Company Number: US-WYE-H14269210

PATIENT
  Age: 54 Year
  Sex: Male
  Weight: 70.37 kg

DRUGS (9)
  1. PRISTIQ [Suspect]
     Indication: ANXIETY
     Dosage: SEE IMAGE
     Dates: end: 20100301
  2. PRISTIQ [Suspect]
     Indication: DEPRESSION
     Dosage: SEE IMAGE
     Dates: end: 20100301
  3. PRISTIQ [Suspect]
     Indication: ANXIETY
     Dosage: SEE IMAGE
  4. PRISTIQ [Suspect]
     Indication: DEPRESSION
     Dosage: SEE IMAGE
  5. PRISTIQ [Suspect]
     Indication: ANXIETY
     Dosage: SEE IMAGE
     Dates: start: 20090101
  6. PRISTIQ [Suspect]
     Indication: DEPRESSION
     Dosage: SEE IMAGE
     Dates: start: 20090101
  7. PRISTIQ [Suspect]
     Indication: ANXIETY
     Dosage: SEE IMAGE
     Dates: start: 20100301
  8. PRISTIQ [Suspect]
     Indication: DEPRESSION
     Dosage: SEE IMAGE
     Dates: start: 20100301
  9. LOVAZA [Concomitant]

REACTIONS (6)
  - DRUG WITHDRAWAL SYNDROME [None]
  - FEELING JITTERY [None]
  - HEADACHE [None]
  - INTENTIONAL DRUG MISUSE [None]
  - LIBIDO DECREASED [None]
  - ORGASM ABNORMAL [None]
